FAERS Safety Report 11928370 (Version 4)
Quarter: 2016Q2

REPORT INFORMATION
  Report Type: Spontaneous
  Country: US (occurrence: US)
  Receive Date: 20160119
  Receipt Date: 20160512
  Transmission Date: 20160815
  Serious: Yes (Hospitalization, Other)
  Sender: FDA-Public Use
  Company Number: US-BAYER-2016-009648

PATIENT
  Age: 33 Year
  Sex: Female
  Weight: 54.42 kg

DRUGS (1)
  1. MIRENA [Suspect]
     Active Substance: LEVONORGESTREL
     Indication: CONTRACEPTION
     Dosage: 20 MCG/24HR, CONT
     Route: 015
     Dates: start: 20151118, end: 20151119

REACTIONS (10)
  - Pelvic organ injury [Recovered/Resolved]
  - Post procedural haemorrhage [Recovered/Resolved]
  - Fall [Recovered/Resolved]
  - Internal haemorrhage [Recovered/Resolved]
  - Procedural nausea [Recovered/Resolved]
  - Embedded device [Recovered/Resolved]
  - Procedural pain [Recovered/Resolved]
  - Post procedural discomfort [Recovered/Resolved]
  - Loss of consciousness [Recovered/Resolved]
  - Complication of device insertion [None]

NARRATIVE: CASE EVENT DATE: 201511
